FAERS Safety Report 7250233-4 (Version None)
Quarter: 2011Q1

REPORT INFORMATION
  Report Type: 
  Country: None (occurrence: None)
  Receive Date: 20110128
  Receipt Date: 20110111
  Transmission Date: 20110831
  Serious: Yes (Death)
  Sender: FDA-Public Use
  Company Number: DE-BAYER-201043541GPV

PATIENT
  Age: 71 Year
  Sex: Male

DRUGS (5)
  1. PIPERACILLIN (PIPERACILLIN/COMBACTAM) [Suspect]
     Indication: STAPHYLOCOCCAL SEPSIS
     Route: 042
  2. COMBACTAM [Suspect]
     Indication: STAPHYLOCOCCAL SEPSIS
     Route: 042
  3. ACYCLOVIR [Concomitant]
     Indication: STAPHYLOCOCCAL SEPSIS
     Route: 042
  4. VANCOMYCIN [Suspect]
     Indication: STAPHYLOCOCCAL SEPSIS
     Dosage: INITIAL DOSE
     Route: 042
  5. CIPROFLOXACIN [Suspect]
     Indication: STAPHYLOCOCCAL SEPSIS
     Route: 042

REACTIONS (1)
  - STAPHYLOCOCCAL SEPSIS [None]
